FAERS Safety Report 12247561 (Version 2)
Quarter: 2016Q2

REPORT INFORMATION
  Report Type: Spontaneous
  Country: FR (occurrence: FR)
  Receive Date: 20160407
  Receipt Date: 20160422
  Transmission Date: 20160815
  Serious: Yes (Hospitalization)
  Sender: FDA-Public Use
  Company Number: FR-HOSPIRA-3233831

PATIENT
  Age: 58 Year
  Sex: Female

DRUGS (8)
  1. CARBOPLATIN HOSPIRA [Suspect]
     Active Substance: CARBOPLATIN
     Indication: METASTASES TO PERITONEUM
     Dosage: CYCLE 3 DAY 1
     Route: 042
     Dates: start: 20160127, end: 20160127
  2. PACLITAXEL KABI [Suspect]
     Active Substance: PACLITAXEL
     Indication: METASTASES TO PERITONEUM
     Dosage: CYCLE 3 DAY 8
  3. CARBOPLATIN HOSPIRA [Suspect]
     Active Substance: CARBOPLATIN
     Indication: OVARIAN CANCER
     Dosage: CYCLE 3 DAY 1
     Route: 042
     Dates: start: 20160127, end: 20160127
  4. PACLITAXEL KABI [Suspect]
     Active Substance: PACLITAXEL
     Indication: OVARIAN CANCER
     Dosage: CYCLE 3 DAY 8
  5. PACLITAXEL KABI [Suspect]
     Active Substance: PACLITAXEL
     Indication: OVARIAN CANCER
     Dosage: CYCLE 3 DAY 15
  6. PACLITAXEL KABI [Suspect]
     Active Substance: PACLITAXEL
     Indication: METASTASES TO PERITONEUM
     Dosage: CYCLE 3 DAY 1
     Route: 042
     Dates: start: 20160127, end: 20160127
  7. PACLITAXEL KABI [Suspect]
     Active Substance: PACLITAXEL
     Indication: METASTASES TO PERITONEUM
     Dosage: CYCLE 3 DAY 15
  8. PACLITAXEL KABI [Suspect]
     Active Substance: PACLITAXEL
     Indication: OVARIAN CANCER
     Dosage: CYCLE 3 DAY 1
     Route: 042
     Dates: start: 20160127, end: 20160127

REACTIONS (2)
  - Hepatocellular injury [Recovering/Resolving]
  - Cholestasis [Recovering/Resolving]

NARRATIVE: CASE EVENT DATE: 20160131
